FAERS Safety Report 4448972-3 (Version None)
Quarter: 2004Q3

REPORT INFORMATION
  Report Type: 
  Country: None (occurrence: None)
  Receive Date: 20040909
  Receipt Date: 20040824
  Transmission Date: 20050211
  Serious: Yes (Hospitalization, Other)
  Sender: FDA-Public Use
  Company Number: USA040670092

PATIENT
  Age: 51 Year
  Sex: Female
  Weight: 97 kg

DRUGS (10)
  1. PROZAC [Suspect]
     Indication: ANGER
     Dosage: 40 MG DAY
     Dates: end: 20040201
  2. DARVOCET-N 100 [Concomitant]
  3. SYNTHROID [Concomitant]
  4. INDERAL [Concomitant]
  5. PREMARIN [Concomitant]
  6. ASPIRIN [Concomitant]
  7. LASIX [Concomitant]
  8. XANAX [Concomitant]
  9. ZYRTEC [Concomitant]
  10. LEXAPRO [Concomitant]

REACTIONS (17)
  - ACTIVITIES OF DAILY LIVING IMPAIRED [None]
  - AMNESIA [None]
  - ANEURYSM [None]
  - ANGER [None]
  - ARTHRITIS [None]
  - BODY HEIGHT DECREASED [None]
  - CONDITION AGGRAVATED [None]
  - FEELING ABNORMAL [None]
  - FLUID RETENTION [None]
  - MIGRAINE [None]
  - RASH ERYTHEMATOUS [None]
  - RASH GENERALISED [None]
  - RASH PRURITIC [None]
  - SKIN BURNING SENSATION [None]
  - SKIN DISCOLOURATION [None]
  - TACHYCARDIA [None]
  - TREATMENT NONCOMPLIANCE [None]
